FAERS Safety Report 4688956-3 (Version None)
Quarter: 2005Q2

REPORT INFORMATION
  Report Type: 
  Country: None (occurrence: None)
  Receive Date: 20050613
  Receipt Date: 20031212
  Transmission Date: 20051028
  Serious: Yes (Hospitalization, Other)
  Sender: FDA-Public Use
  Company Number: US-SANOFI-SYNTHELABO-F01200301458

PATIENT
  Sex: Male

DRUGS (13)
  1. OXALIPLATIN [Suspect]
     Indication: COLON CANCER
     Route: 042
     Dates: start: 20031202, end: 20031202
  2. CAPECITABINE [Suspect]
     Dosage: 1800 MG (1000 MG/M2 TWICE A DAY PER ORAL FROM D1 TO D15)
     Route: 048
     Dates: start: 20031202, end: 20031202
  3. LANOXIN [Concomitant]
  4. SOTALOL HCL [Concomitant]
  5. NORVASC [Concomitant]
  6. RANITIDINE [Concomitant]
  7. PROSCAR [Concomitant]
  8. BEXTRA [Concomitant]
  9. PRAVACHOL [Concomitant]
     Dosage: UNK
     Route: 065
  10. LASIX [Concomitant]
     Dosage: UNK
     Route: 065
  11. CATAPRES [Concomitant]
     Dosage: UNK
     Route: 065
  12. ASPIRIN [Concomitant]
     Dosage: UNK
     Route: 065
  13. PHENERGAN [Concomitant]
     Dosage: UNK
     Route: 065

REACTIONS (5)
  - ASTHENIA [None]
  - DEHYDRATION [None]
  - DIARRHOEA [None]
  - HYPOKALAEMIA [None]
  - RENAL FAILURE [None]
